FAERS Safety Report 11901507 (Version 1)
Quarter: 2016Q1

REPORT INFORMATION
  Report Type: Report from Study
  Country: US (occurrence: US)
  Receive Date: 20160108
  Receipt Date: 20160108
  Transmission Date: 20160526
  Serious: No
  Sender: FDA-Public Use
  Company Number: US-ABBVIE-15P-163-1489354-00

PATIENT
  Sex: Male

DRUGS (2)
  1. VIEKIRA PAK [Suspect]
     Active Substance: DASABUVIR\OMBITASVIR\PARITAPREVIR\RITONAVIR
     Dosage: DASABUVIR ONE TABLET
     Route: 065
  2. VIEKIRA PAK [Suspect]
     Active Substance: DASABUVIR\OMBITASVIR\PARITAPREVIR\RITONAVIR
     Indication: CHRONIC HEPATITIS C
     Dosage: 12.5MG/75MG/50MG OMBITASVIR/PARITAPREVIR/RITONAVIR IN EVERY MORNING
     Route: 065

REACTIONS (8)
  - Abdominal discomfort [Unknown]
  - Oropharyngeal pain [Unknown]
  - Rash [Unknown]
  - Dyspepsia [Unknown]
  - Fatigue [Unknown]
  - Dry skin [Unknown]
  - Pruritus [Unknown]
  - Pyrexia [Unknown]
